FAERS Safety Report 10549377 (Version 3)
Quarter: 2015Q3

REPORT INFORMATION
  Report Type: Spontaneous
  Country: US (occurrence: US)
  Receive Date: 20141028
  Receipt Date: 20150709
  Transmission Date: 20151125
  Serious: Yes (Hospitalization, Other)
  Sender: FDA-Public Use
  Company Number: US-BAYER-2014-158621

PATIENT
  Age: 38 Year
  Sex: Female
  Weight: 103.4 kg

DRUGS (1)
  1. MIRENA [Suspect]
     Active Substance: LEVONORGESTREL
     Indication: CONTRACEPTION
     Dosage: 20 MCG/24HR, CONT
     Route: 015
     Dates: start: 20060223, end: 20090908

REACTIONS (13)
  - Menorrhagia [Not Recovered/Not Resolved]
  - Dyspareunia [None]
  - Stress [None]
  - Device issue [None]
  - Uterine perforation [None]
  - Menstruation irregular [None]
  - Injury [None]
  - Pain [None]
  - Blood pressure measurement [None]
  - Depressed mood [None]
  - Emotional disorder [None]
  - Anxiety [None]
  - Off label use of device [None]

NARRATIVE: CASE EVENT DATE: 2006
